FAERS Safety Report 21878097 (Version 1)
Quarter: 2023Q1

REPORT INFORMATION
  Report Type: Spontaneous
  Country: IT (occurrence: IT)
  Receive Date: 20230118
  Receipt Date: 20230118
  Transmission Date: 20230418
  Serious: Yes (Life-Threatening, Other)
  Sender: FDA-Public Use
  Company Number: IT-PFIZER INC-PV202300009264

PATIENT
  Age: 48 Year
  Sex: Male

DRUGS (1)
  1. METHYLPREDNISOLONE [Suspect]
     Active Substance: METHYLPREDNISOLONE
     Indication: Myelitis
     Dosage: HIGH DOSE, 5 DAYS
     Route: 042

REACTIONS (2)
  - Drug ineffective [Unknown]
  - Drug resistance [Unknown]
